FAERS Safety Report 9369549 (Version 1)
Quarter: 2013Q2

REPORT INFORMATION
  Report Type: Spontaneous
  Country: US (occurrence: US)
  Receive Date: 20130626
  Receipt Date: 20130626
  Transmission Date: 20140414
  Serious: Yes (Hospitalization, Other)
  Sender: FDA-Public Use
  Company Number: US-ELI_LILLY_AND_COMPANY-US201306004832

PATIENT
  Sex: Female

DRUGS (6)
  1. HUMATROPE [Suspect]
     Dosage: 6 MG, UNKNOWN
     Route: 065
     Dates: start: 2010, end: 201212
  2. CORTEF [Concomitant]
     Dosage: 30 MG, UNK
  3. SYNTHROID [Concomitant]
     Dosage: 125 UNK, QD
  4. ESTROGEN [Concomitant]
  5. DESMOPRESSIN [Concomitant]
  6. CITALOPRAM [Concomitant]
     Dosage: 20 UNK, QD

REACTIONS (2)
  - Shunt infection [Unknown]
  - Bacterial disease carrier [Unknown]
